FAERS Safety Report 22338811 (Version 1)
Quarter: 2023Q2

REPORT INFORMATION
  Report Type: Report from Study
  Country: CN (occurrence: CN)
  Receive Date: 20230518
  Receipt Date: 20230518
  Transmission Date: 20230722
  Serious: Yes (Other)
  Sender: FDA-Public Use
  Company Number: CN-SUN PHARMACEUTICAL INDUSTRIES LTD-2023R1-388512

PATIENT
  Sex: Female

DRUGS (2)
  1. DEXAMETHASONE [Suspect]
     Active Substance: DEXAMETHASONE
     Indication: Adrenogenital syndrome
     Dosage: 0.75 MILLIGRAM, QD-NIGHT
     Route: 065
  2. DEXAMETHASONE [Suspect]
     Active Substance: DEXAMETHASONE
     Dosage: 0.375 MILLIGRAM, QD-NIGHT
     Route: 065

REACTIONS (4)
  - Therapeutic response decreased [Unknown]
  - Gene mutation [Unknown]
  - Exposure during pregnancy [Unknown]
  - Live birth [Unknown]
